FAERS Safety Report 18500053 (Version 3)
Quarter: 2020Q4

REPORT INFORMATION
  Report Type: Spontaneous
  Country: SE (occurrence: SE)
  Receive Date: 20201113
  Receipt Date: 20201210
  Transmission Date: 20210114
  Serious: Yes (Hospitalization, Other)
  Sender: FDA-Public Use
  Company Number: SE-TEVA-2020-SE-1847725

PATIENT
  Age: 82 Year
  Sex: Female

DRUGS (7)
  1. RAMIPRIL. [Suspect]
     Active Substance: RAMIPRIL
     Dosage: UNK:UNIT DOSE:5MILLIGRAM:THERAPY START DATE:ASKED BUT UNKNOWNTHERAPY END DATE :ASKED BUT UNKNOWN
     Route: 065
  2. TORASEMID [Suspect]
     Active Substance: TORSEMIDE
     Dosage: 5 MG:THERAPY START DATE:ASKED BUT UNKNOWNTHERAPY END DATE :ASKED BUT UNKNOWN
  3. SIMVASTATIN. [Concomitant]
     Active Substance: SIMVASTATIN
     Dosage: UNK:THERAPY START DATE:ASKED BUT UNKNOWN?THERAPY END DATE :ASKED BUT UNKNOWN
  4. METOPROLOL. [Suspect]
     Active Substance: METOPROLOL
     Dosage: 47.5 MG:THERAPY START DATE:ASKED BUT UNKNOWN:THERAPY END DATE :ASKED BUT UNKNOWN
     Route: 048
  5. EZETROL [Concomitant]
     Active Substance: EZETIMIBE
     Dosage: 0-0-0.5-0:THERAPY START DATE:ASKED BUT UNKNOWN:THERAPY END DATE :ASKED BUT UNKNOWN:UNIT DOSE:10MILLI
  6. PHENPROCOUMON [Concomitant]
     Active Substance: PHENPROCOUMON
     Dosage: UNK:THERAPY START DATE:ASKED BUT UNKNOWN:THERAPY END DATE :ASKED BUT UNKNOWN
  7. AMLODIPINE [Suspect]
     Active Substance: AMLODIPINE BESYLATE
     Dosage: 5 MG:THERAPY START DATE:ASKED BUT UNKNOWNTHERAPY END DATE :ASKED BUT UNKNOWN
     Route: 065

REACTIONS (5)
  - Hypotension [Unknown]
  - Gait disturbance [Unknown]
  - Nausea [Unknown]
  - Vomiting [Unknown]
  - Circulatory collapse [Unknown]
